FAERS Safety Report 6674904-3 (Version None)
Quarter: 2010Q2

REPORT INFORMATION
  Report Type: 
  Country: None (occurrence: None)
  Receive Date: 20100409
  Receipt Date: 20090530
  Transmission Date: 20101027
  Serious: Yes (Hospitalization)
  Sender: FDA-Public Use
  Company Number: US-PFIZER INC-2009220474

PATIENT
  Sex: Female
  Weight: 53.515 kg

DRUGS (10)
  1. OXALIPLATIN [Suspect]
     Indication: COLORECTAL CANCER
     Dosage: 126 MG, CYCLIC, EVERY 2 WEEKS
     Route: 042
     Dates: start: 20090105
  2. FLUOROURACIL [Suspect]
     Indication: COLORECTAL CANCER
     Dosage: 590 MG, CYCLIC, EVERY 2 WEEKS
     Route: 040
     Dates: start: 20090105
  3. FLUOROURACIL [Suspect]
     Dosage: 3550 MG, CYCLIC, EVERY 2 WEEKS
     Route: 042
     Dates: start: 20090105
  4. CALCIUM FOLINATE [Suspect]
     Indication: COLORECTAL CANCER
     Dosage: 590 MG, CYCLIC, EVERY 2 WEEKS
     Route: 042
     Dates: start: 20090105
  5. SUNITINIB MALATE [Suspect]
     Indication: COLORECTAL CANCER
     Dosage: 37.5 MG, 1X/DAY
     Route: 048
     Dates: start: 20090105
  6. OXYCODONE HCL AND ACETAMINOPHEN [Concomitant]
     Dosage: 5 MG, 4X/DAY
  7. DECADRON [Concomitant]
     Dosage: 4 MG, 2X/DAY, AFTER CHEMO
  8. ONDANSETRON [Concomitant]
     Indication: NAUSEA
     Dosage: 8 MG, UNK
  9. GRANISETRON [Concomitant]
     Dosage: 1 MG, UNK
  10. FENTANYL [Concomitant]
     Indication: PAIN
     Dosage: 50 UG, UNK
     Dates: start: 20090101

REACTIONS (1)
  - FISTULA [None]
